FAERS Safety Report 10009581 (Version 1)
Quarter: 2014Q1

REPORT INFORMATION
  Report Type: Spontaneous
  Country: US (occurrence: US)
  Receive Date: 20140312
  Receipt Date: 20140312
  Transmission Date: 20141002
  Serious: No
  Sender: FDA-Public Use
  Company Number: US-INCYTE CORPORATION-2012IN001766

PATIENT
  Age: 64 Year
  Sex: Male

DRUGS (9)
  1. JAKAFI [Suspect]
     Indication: MYELOFIBROSIS
     Dosage: 10 MG, BID
     Route: 048
  2. HUMALOG [Concomitant]
  3. LANTUS [Concomitant]
  4. LOSARTAN [Concomitant]
  5. CARVEDILOL [Concomitant]
  6. MAGNESIUM [Concomitant]
  7. VOLTAREN [Concomitant]
  8. VICODIN [Concomitant]
  9. VIAGRA [Concomitant]

REACTIONS (1)
  - Musculoskeletal pain [Unknown]
